FAERS Safety Report 11427541 (Version 1)
Quarter: 2015Q3

REPORT INFORMATION
  Report Type: Spontaneous
  Country: US (occurrence: US)
  Receive Date: 20150827
  Receipt Date: 20150827
  Transmission Date: 20151125
  Serious: Yes (Other)
  Sender: FDA-Public Use
  Company Number: US-AMGEN-USASP2015087269

PATIENT
  Age: 66 Year
  Sex: Female

DRUGS (2)
  1. ENBREL [Suspect]
     Active Substance: ETANERCEPT
     Indication: RHEUMATOID ARTHRITIS
     Dosage: UNK
     Route: 065
     Dates: start: 20140615
  2. NEXIUM [Concomitant]
     Active Substance: ESOMEPRAZOLE MAGNESIUM
     Dosage: UNK UNK, BID

REACTIONS (11)
  - Breast cancer [Unknown]
  - Pain in extremity [Unknown]
  - Arthralgia [Unknown]
  - Hiatus hernia [Not Recovered/Not Resolved]
  - Renal failure [Not Recovered/Not Resolved]
  - Peripheral swelling [Unknown]
  - Arthralgia [Unknown]
  - Ulcer haemorrhage [Not Recovered/Not Resolved]
  - Knee operation [Unknown]
  - Skin wrinkling [Unknown]
  - Pain [Unknown]

NARRATIVE: CASE EVENT DATE: 2014
